FAERS Safety Report 16725620 (Version 2)
Quarter: 2019Q3

REPORT INFORMATION
  Report Type: Spontaneous
  Country: BR (occurrence: BR)
  Receive Date: 20190821
  Receipt Date: 20190823
  Transmission Date: 20191005
  Serious: Yes (Death, Other)
  Sender: FDA-Public Use
  Company Number: BR-PFIZER INC-2019358455

PATIENT
  Sex: Male

DRUGS (1)
  1. XELJANZ [Suspect]
     Active Substance: TOFACITINIB CITRATE
     Dosage: UNK
     Dates: start: 201908, end: 201908

REACTIONS (4)
  - Malaise [Unknown]
  - Feeling abnormal [Unknown]
  - Acute myocardial infarction [Fatal]
  - Nausea [Unknown]

NARRATIVE: CASE EVENT DATE: 20190812
